FAERS Safety Report 16332893 (Version 1)
Quarter: 2019Q2

REPORT INFORMATION
  Report Type: Spontaneous
  Country: US (occurrence: US)
  Receive Date: 20190520
  Receipt Date: 20190520
  Transmission Date: 20190711
  Serious: No
  Sender: FDA-Public Use
  Company Number: US-PFIZER INC-2019213562

PATIENT
  Age: 73 Year

DRUGS (4)
  1. CODEINE [Suspect]
     Active Substance: CODEINE
     Dosage: UNK
  2. CODEINE SULFATE. [Suspect]
     Active Substance: CODEINE SULFATE
     Dosage: UNK
  3. ATORVASTATIN CALCIUM. [Suspect]
     Active Substance: ATORVASTATIN CALCIUM
     Dosage: UNK
  4. PRAVASTATIN. [Suspect]
     Active Substance: PRAVASTATIN
     Dosage: UNK

REACTIONS (1)
  - Drug hypersensitivity [Unknown]
